FAERS Safety Report 9837335 (Version 1)
Quarter: 2013Q4

REPORT INFORMATION
  Report Type: Spontaneous
  Country: US (occurrence: None)
  Receive Date: 20131205
  Receipt Date: 20131205
  Transmission Date: 20140711
  Serious: Yes (Other)
  Sender: FDA-Public Use
  Company Number: 163-POMAL-13093905

PATIENT
  Age: 66 Year
  Sex: Male
  Weight: 55.79 kg

DRUGS (10)
  1. POMALYST (POMALIDOMIDE) (2 MILLIGRAM, CAPSULES) [Suspect]
     Indication: PLASMA CELL MYELOMA
     Dosage: 1.5 MG, 21 IN 28 D, PO
     Route: 048
     Dates: start: 20130824
  2. ZOMETA (ZOLEDRONIC ACID) [Concomitant]
  3. MS CONTIN [Concomitant]
  4. MARINIOL (DRONABINOL) [Concomitant]
  5. PLAVIX (CLOPIDOGREL SULFATE) [Concomitant]
  6. ISOSORBIDE (ISOSORBIDE) [Concomitant]
  7. OMEPRAZOLE (OMEPRAZOLE) [Concomitant]
  8. BUSPIRONE (BUSPIRONE) [Concomitant]
  9. FOLIC ACID (FOLIC ACID) [Concomitant]
  10. FUROSEMIDE (FUROSEMIDE) [Concomitant]

REACTIONS (3)
  - Dysuria [None]
  - Malaise [None]
  - Oedema peripheral [None]
